FAERS Safety Report 5026092-7 (Version None)
Quarter: 2006Q2

REPORT INFORMATION
  Report Type: 
  Country: None (occurrence: None)
  Receive Date: 20060614
  Receipt Date: 20060602
  Transmission Date: 20061013
  Serious: Yes (Other)
  Sender: FDA-Public Use
  Company Number: BR-ROCHE-451054

PATIENT
  Age: 31 Year
  Sex: Female
  Weight: 48 kg

DRUGS (4)
  1. ROACUTAN [Suspect]
     Indication: ACNE
     Route: 048
     Dates: start: 20040302, end: 20040503
  2. ROACUTAN [Suspect]
     Route: 048
     Dates: start: 20040504, end: 20041010
  3. ROACUTAN [Suspect]
     Route: 048
     Dates: start: 20041011, end: 20041107
  4. ROACUTAN [Suspect]
     Route: 048
     Dates: start: 20041108, end: 20041207

REACTIONS (5)
  - CONSTIPATION [None]
  - GASTROINTESTINAL INFECTION [None]
  - HEPATIC STEATOSIS [None]
  - HYPERCHOLESTEROLAEMIA [None]
  - PRURITUS [None]
